FAERS Safety Report 6212892-4 (Version None)
Quarter: 2009Q2

REPORT INFORMATION
  Report Type: 
  Country: None (occurrence: None)
  Receive Date: 20090603
  Receipt Date: 20090527
  Transmission Date: 20091009
  Serious: Yes (Other)
  Sender: FDA-Public Use
  Company Number: US-AVENTIS-200914506US

PATIENT
  Age: 85 Year
  Sex: Female

DRUGS (3)
  1. ALLEGRA D 24 HOUR [Suspect]
     Dosage: DOSE: 1 TABLET A DAY
     Route: 048
     Dates: start: 20090101, end: 20090527
  2. ASPIRIN [Suspect]
     Route: 048
     Dates: start: 20090527
  3. ACEON [Concomitant]
     Indication: BLOOD PRESSURE
     Dosage: DOSE: UNK

REACTIONS (6)
  - DIZZINESS [None]
  - DRY MOUTH [None]
  - DRY THROAT [None]
  - ERYTHEMA [None]
  - SYNCOPE [None]
  - VISION BLURRED [None]
